FAERS Safety Report 8481337-6 (Version None)
Quarter: 2012Q3

REPORT INFORMATION
  Report Type: 
  Country: None (occurrence: None)
  Receive Date: 20120702
  Receipt Date: 20120622
  Transmission Date: 20120928
  Serious: Yes (Other)
  Sender: FDA-Public Use
  Company Number: US-JNJFOC-20120410746

PATIENT
  Sex: Female

DRUGS (25)
  1. CYANOCOBALAMIN [Concomitant]
     Route: 065
  2. FOLIC ACID [Concomitant]
     Route: 065
  3. PRILOSEC [Concomitant]
     Route: 065
  4. VALIUM [Concomitant]
     Route: 065
  5. VITAMIN B COMPLEX W/ C [Concomitant]
     Route: 065
  6. SPIRONOLACTONE [Concomitant]
     Route: 065
  7. HYDROCODONE BITARTRATE + ACETAMINOPHEN [Concomitant]
     Dosage: 5-500 MG PRN
     Route: 065
  8. PREDNISONE TAB [Concomitant]
     Route: 065
  9. GABAPENTIN [Concomitant]
     Route: 065
  10. BENICAR HCT [Concomitant]
     Dosage: 40/25 MG
     Route: 065
  11. TOPROL-XL [Concomitant]
     Route: 065
  12. JANUVIA [Concomitant]
     Route: 065
  13. REMICADE [Suspect]
     Indication: PSORIATIC ARTHROPATHY
     Dosage: STARTED AROUND 8-9 YEARS.
     Route: 042
  14. ROPINIROLE HYDROCHLORIDE [Concomitant]
     Route: 065
  15. BUDESONIDE [Concomitant]
     Dosage: AT MORNING
     Route: 065
  16. REMICADE [Suspect]
     Route: 042
     Dates: start: 20120524
  17. ARAVA [Concomitant]
     Route: 065
  18. WELCHOL [Concomitant]
     Route: 065
  19. STARLIX [Concomitant]
     Route: 065
  20. LANTUS [Concomitant]
     Dosage: 15 UNITS
     Route: 065
  21. ACETAMINOPHEN [Concomitant]
     Route: 065
  22. TRAZODONE HCL [Concomitant]
     Route: 065
  23. FOLIC ACID [Concomitant]
     Route: 065
  24. PLAVIX [Concomitant]
     Route: 065
  25. VITAMINS NOS [Concomitant]
     Route: 065

REACTIONS (8)
  - LIPASE INCREASED [None]
  - WHITE BLOOD CELL COUNT INCREASED [None]
  - BLOOD GLUCOSE INCREASED [None]
  - WEIGHT DECREASED [None]
  - DIARRHOEA [None]
  - DEHYDRATION [None]
  - LIVER FUNCTION TEST ABNORMAL [None]
  - SPINAL OPERATION [None]
